FAERS Safety Report 14355753 (Version 5)
Quarter: 2018Q1

REPORT INFORMATION
  Report Type: Report from Study
  Country: CA (occurrence: CA)
  Receive Date: 20180105
  Receipt Date: 20180308
  Transmission Date: 20180509
  Serious: Yes (Hospitalization)
  Sender: FDA-Public Use
  Company Number: CA-TEVA-2017-CA-842147

PATIENT
  Age: 52 Year
  Sex: Male

DRUGS (4)
  1. COPAXONE [Suspect]
     Active Substance: GLATIRAMER ACETATE
     Indication: MULTIPLE SCLEROSIS
     Dosage: 20 MILLIGRAM DAILY;
     Route: 058
     Dates: start: 20040812
  2. VITAMIN D [Concomitant]
     Active Substance: CHOLECALCIFEROL
  3. OMEGA 3 COMPLEX [Concomitant]
  4. OLMETEC [Concomitant]
     Active Substance: OLMESARTAN MEDOXOMIL

REACTIONS (15)
  - Injection site bruising [Not Recovered/Not Resolved]
  - Dysstasia [Recovering/Resolving]
  - Injection site pruritus [Unknown]
  - Gait disturbance [Recovering/Resolving]
  - Injection site hypoaesthesia [Unknown]
  - Pain in extremity [Recovering/Resolving]
  - Atrophy [Unknown]
  - Adverse reaction [Unknown]
  - Swelling [Recovering/Resolving]
  - Contusion [Not Recovered/Not Resolved]
  - Pain [Unknown]
  - Product closure issue [Unknown]
  - Injection site pain [Recovering/Resolving]
  - Hypoaesthesia [Not Recovered/Not Resolved]
  - Injection site swelling [Unknown]

NARRATIVE: CASE EVENT DATE: 201712
